FAERS Safety Report 5988904-X (Version None)
Quarter: 2008Q4

REPORT INFORMATION
  Report Type: 
  Country: None (occurrence: None)
  Receive Date: 20081210
  Receipt Date: 20080602
  Transmission Date: 20090506
  Serious: Yes (Hospitalization)
  Sender: FDA-Public Use
  Company Number: US-AMGEN-STX277756

PATIENT
  Sex: Female
  Weight: 70.4 kg

DRUGS (3)
  1. ENBREL [Suspect]
     Indication: PSORIASIS
     Route: 058
     Dates: start: 20080303
  2. PREDNISONE TAB [Concomitant]
     Dates: end: 20080503
  3. CITRACAL [Concomitant]

REACTIONS (2)
  - ARTHRITIS INFECTIVE [None]
  - STAPHYLOCOCCAL INFECTION [None]
